FAERS Safety Report 6939183-8 (Version None)
Quarter: 2010Q3

REPORT INFORMATION
  Report Type: 
  Country: None (occurrence: None)
  Receive Date: 20100824
  Receipt Date: 20100823
  Transmission Date: 20110219
  Serious: Yes (Life-Threatening, Hospitalization)
  Sender: FDA-Public Use
  Company Number: TW-BRISTOL-MYERS SQUIBB COMPANY-15243256

PATIENT
  Age: 48 Year
  Sex: Male
  Weight: 74 kg

DRUGS (3)
  1. CETUXIMAB [Suspect]
     Indication: LIP AND/OR ORAL CAVITY CANCER
     Dosage: RECENT INF:22JUL2010
     Route: 042
     Dates: start: 20100311
  2. CISPLATIN [Suspect]
     Indication: LIP AND/OR ORAL CAVITY CANCER
     Dosage: RECENT INF:22JUL2010
     Route: 042
     Dates: start: 20100311
  3. FLUOROURACIL [Suspect]
     Indication: LIP AND/OR ORAL CAVITY CANCER
     Dosage: RECENT INF:01APR2010
     Route: 042
     Dates: start: 20100311, end: 20100401

REACTIONS (5)
  - ENCEPHALOPATHY [None]
  - HYPOXIA [None]
  - LEUKOPENIA [None]
  - NEUTROPENIA [None]
  - PNEUMONIA [None]
